FAERS Safety Report 5383419-4 (Version None)
Quarter: 2007Q3

REPORT INFORMATION
  Report Type: 
  Country: None (occurrence: None)
  Receive Date: 20070710
  Receipt Date: 20070702
  Transmission Date: 20080115
  Serious: Yes (Hospitalization)
  Sender: FDA-Public Use
  Company Number: FR-PFIZER INC-2007055069

PATIENT
  Age: 56 Year
  Sex: Female

DRUGS (2)
  1. MEDROL [Suspect]
  2. TEMOZOLOMIDE [Suspect]

REACTIONS (2)
  - DYSPNOEA [None]
  - PNEUMONIA [None]
